FAERS Safety Report 11722435 (Version 9)
Quarter: 2018Q1

REPORT INFORMATION
  Report Type: Spontaneous
  Country: US (occurrence: US)
  Receive Date: 20151111
  Receipt Date: 20180323
  Transmission Date: 20180508
  Serious: Yes (Hospitalization, Congenital Anomaly, Other)
  Sender: FDA-Public Use
  Company Number: PHEH2015US022989

PATIENT
  Sex: Male

DRUGS (2)
  1. ZOFRAN [Suspect]
     Active Substance: ONDANSETRON HYDROCHLORIDE
     Indication: FOETAL EXPOSURE DURING PREGNANCY
     Route: 064
  2. ONDANSETRON HYDROCHLORIDE. [Suspect]
     Active Substance: ONDANSETRON HYDROCHLORIDE
     Indication: FOETAL EXPOSURE DURING PREGNANCY
     Route: 064

REACTIONS (18)
  - Cough [Unknown]
  - Jaundice [Unknown]
  - Pain [Unknown]
  - Headache [Unknown]
  - Multiple congenital abnormalities [Unknown]
  - Cleft palate [Unknown]
  - Scar [Unknown]
  - Otitis media chronic [Unknown]
  - Foetal exposure during pregnancy [Unknown]
  - Anxiety [Unknown]
  - Bronchitis [Unknown]
  - Vomiting [Unknown]
  - Constipation [Unknown]
  - Anhedonia [Unknown]
  - Injury [Unknown]
  - Pyrexia [Unknown]
  - Congenital anomaly [Unknown]
  - Rhinorrhoea [Unknown]
